FAERS Safety Report 18658559 (Version 1)
Quarter: 2020Q4

REPORT INFORMATION
  Report Type: Other
  Country: ES (occurrence: ES)
  Receive Date: 20201224
  Receipt Date: 20201224
  Transmission Date: 20210114
  Serious: Yes (Life-Threatening, Hospitalization)
  Sender: FDA-Public Use
  Company Number: ES-CADILA HEALTHCARE LIMITED-ES-ZYDUS-059424

PATIENT

DRUGS (7)
  1. ACFOL [Concomitant]
     Active Substance: FOLIC ACID
     Indication: PRODUCT USED FOR UNKNOWN INDICATION
     Dosage: 1-0-0-0
     Route: 065
     Dates: start: 20200625, end: 20200720
  2. FORXIGA [Concomitant]
     Active Substance: DAPAGLIFLOZIN
     Indication: TYPE 2 DIABETES MELLITUS
     Dosage: 1-0-0-0
     Route: 048
     Dates: start: 20190219, end: 20200720
  3. TRYPTIZOLE [Concomitant]
     Active Substance: AMITRIPTYLINE HYDROCHLORIDE
     Indication: PRODUCT USED FOR UNKNOWN INDICATION
     Dosage: 0-0-1-0
     Route: 065
     Dates: start: 20190415
  4. PRANDIN [Concomitant]
     Active Substance: REPAGLINIDE
     Indication: TYPE 2 DIABETES MELLITUS
     Dosage: 1-0-1-0
     Route: 048
     Dates: start: 20150305, end: 20150320
  5. METFORMINE [Suspect]
     Active Substance: METFORMIN HYDROCHLORIDE
     Indication: TYPE 2 DIABETES MELLITUS
     Dosage: 1-1-1-0
     Route: 048
     Dates: start: 20160309, end: 20200720
  6. OMEPRAZOLE. [Concomitant]
     Active Substance: OMEPRAZOLE
     Indication: PRODUCT USED FOR UNKNOWN INDICATION
     Dosage: 1-0-0-0
     Route: 048
     Dates: start: 20170718, end: 20200720
  7. OZEMPIC [Concomitant]
     Active Substance: SEMAGLUTIDE
     Indication: TYPE 2 DIABETES MELLITUS
     Dosage: 1 CADA 7 D?S
     Route: 065
     Dates: start: 20200419, end: 20200720

REACTIONS (2)
  - Lactic acidosis [Recovered/Resolved with Sequelae]
  - Shock [Recovered/Resolved]

NARRATIVE: CASE EVENT DATE: 20200720
